FAERS Safety Report 9503336 (Version 3)
Quarter: 2014Q2

REPORT INFORMATION
  Report Type: Spontaneous
  Country: GB (occurrence: GB)
  Receive Date: 20130906
  Receipt Date: 20140507
  Transmission Date: 20141212
  Serious: Yes (Hospitalization, Other)
  Sender: FDA-Public Use
  Company Number: GB-PFIZER INC-2013254068

PATIENT
  Age: 68 Year
  Sex: Female
  Weight: 66.7 kg

DRUGS (6)
  1. PREGABALIN [Suspect]
     Dosage: 25 MG, UNK
     Route: 048
  2. SENOKOT [Concomitant]
     Dosage: 2 DF, AT NIGHT
  3. DIPROBASE CREAM [Concomitant]
     Indication: PSORIASIS
     Dosage: UNK DF, 1X/DAY
  4. DIPROSONE [Concomitant]
     Indication: PSORIASIS
     Dosage: TWICE DAILY ON SATURDAY AND SUNDAY (HAD NOT USED FOR FIVE DAYS BEFORE HOSPITAL ADMINISTATION)
  5. DERMOVATE [Concomitant]
     Indication: PSORIASIS
     Dosage: ONCE A DAY ON MONDAY, WEDNESDAY AND FRIDAY
  6. PARACETAMOL [Concomitant]

REACTIONS (15)
  - Malaise [Recovered/Resolved]
  - Dizziness [Recovered/Resolved]
  - Tinnitus [Recovered/Resolved]
  - Dysgeusia [Recovered/Resolved]
  - Hyperhidrosis [Recovered/Resolved]
  - Headache [Recovered/Resolved]
  - Somnolence [Recovered/Resolved]
  - Feeling drunk [Recovered/Resolved]
  - Neck pain [Recovered/Resolved]
  - Nausea [Recovered/Resolved]
  - Vomiting [Recovered/Resolved]
  - Palpitations [Recovered/Resolved]
  - Atrial fibrillation [Recovered/Resolved]
  - Psoriasis [Recovered/Resolved]
  - Myalgia [Recovered/Resolved]
